FAERS Safety Report 19598203 (Version 1)
Quarter: 2021Q3

REPORT INFORMATION
  Report Type: Spontaneous
  Country: US (occurrence: US)
  Receive Date: 20210722
  Receipt Date: 20210722
  Transmission Date: 20211014
  Serious: No
  Sender: FDA-Public Use
  Company Number: None

PATIENT
  Age: 63 Year
  Sex: Male
  Weight: 97 kg

DRUGS (1)
  1. EMPAGLIFLOZIN (EMPAGLIFLOZIN 25MG TAB) [Suspect]
     Active Substance: EMPAGLIFLOZIN
     Indication: DIABETES MELLITUS
     Route: 048
     Dates: start: 20200701, end: 20210707

REACTIONS (12)
  - Peripheral ischaemia [None]
  - Glycosylated haemoglobin increased [None]
  - Staphylococcal infection [None]
  - Pain in extremity [None]
  - Peripheral artery occlusion [None]
  - Staphylococcal bacteraemia [None]
  - Skin ulcer [None]
  - Hypoaesthesia [None]
  - Diabetic neuropathy [None]
  - Toe amputation [None]
  - Muscle spasms [None]
  - Blood glucose increased [None]

NARRATIVE: CASE EVENT DATE: 20210706
